FAERS Safety Report 5983849-3 (Version None)
Quarter: 2008Q4

REPORT INFORMATION
  Report Type: 
  Country: None (occurrence: None)
  Receive Date: 20081208
  Receipt Date: 20081127
  Transmission Date: 20090506
  Serious: Yes (Hospitalization)
  Sender: FDA-Public Use
  Company Number: JP-JNJFOC-20080102482

PATIENT
  Sex: Male

DRUGS (4)
  1. FINIBAX [Suspect]
     Route: 041
  2. FINIBAX [Suspect]
     Indication: PNEUMONIA
     Route: 041
  3. TS-1 [Concomitant]
     Route: 048
  4. CFPM [Concomitant]
     Indication: PNEUMONIA
     Route: 065

REACTIONS (3)
  - DRUG HYPERSENSITIVITY [None]
  - EOSINOPHIL COUNT INCREASED [None]
  - PYREXIA [None]
